FAERS Safety Report 23875263 (Version 1)
Quarter: 2024Q2

REPORT INFORMATION
  Report Type: Spontaneous
  Country: US (occurrence: US)
  Receive Date: 20240520
  Receipt Date: 20240520
  Transmission Date: 20240716
  Serious: No
  Sender: FDA-Public Use
  Company Number: US-JNJFOC-20240476793

PATIENT

DRUGS (1)
  1. MENS ROGAINE EXTRA STRENGTH [Suspect]
     Active Substance: MINOXIDIL
     Indication: Androgenetic alopecia
     Route: 061

REACTIONS (4)
  - Alopecia [Unknown]
  - Application site irritation [Unknown]
  - Application site acne [Unknown]
  - Application site pruritus [Unknown]

NARRATIVE: CASE EVENT DATE: 20230101
